FAERS Safety Report 20780025 (Version 1)
Quarter: 2022Q2

REPORT INFORMATION
  Report Type: Spontaneous
  Country: US (occurrence: US)
  Receive Date: 20220503
  Receipt Date: 20220503
  Transmission Date: 20220721
  Serious: Yes (Other)
  Sender: FDA-Public Use
  Company Number: US-ALLERGAN-2213748US

PATIENT
  Sex: Female

DRUGS (1)
  1. VRAYLAR [Suspect]
     Active Substance: CARIPRAZINE
     Indication: Product used for unknown indication
     Dosage: 1.5 MG
     Dates: start: 20220416

REACTIONS (6)
  - Blindness transient [Recovered/Resolved]
  - Hot flush [Recovered/Resolved]
  - Night sweats [Recovered/Resolved]
  - Tinnitus [Recovered/Resolved]
  - Hangover [Recovered/Resolved]
  - Insomnia [Recovered/Resolved]

NARRATIVE: CASE EVENT DATE: 20220416
